FAERS Safety Report 22207486 (Version 1)
Quarter: 2023Q2

REPORT INFORMATION
  Report Type: Spontaneous
  Country: US (occurrence: None)
  Receive Date: 20230413
  Receipt Date: 20230413
  Transmission Date: 20230722
  Serious: Yes (Other)
  Sender: FDA-Public Use
  Company Number: None

PATIENT
  Age: 61 Year
  Sex: Female
  Weight: 87.5 kg

DRUGS (5)
  1. TECENTRIQ [Suspect]
     Active Substance: ATEZOLIZUMAB
     Indication: Small cell lung cancer
     Dosage: OTHER FREQUENCY : ONCE;?
     Route: 040
     Dates: start: 20230411, end: 20230411
  2. CARBOPLATIN [Concomitant]
     Active Substance: CARBOPLATIN
  3. ETOPOSIDE [Concomitant]
     Active Substance: ETOPOSIDE
  4. DEXAMETHASONE [Concomitant]
     Active Substance: DEXAMETHASONE
  5. FOSAPREPITANT [Concomitant]
     Active Substance: FOSAPREPITANT

REACTIONS (2)
  - Tinnitus [None]
  - Infusion related reaction [None]

NARRATIVE: CASE EVENT DATE: 20230411
